FAERS Safety Report 9632828 (Version 5)
Quarter: 2014Q1

REPORT INFORMATION
  Report Type: Spontaneous
  Country: JP (occurrence: JP)
  Receive Date: 20131018
  Receipt Date: 20140129
  Transmission Date: 20141002
  Serious: Yes (Other)
  Sender: FDA-Public Use
  Company Number: JP-GILEAD-2013-0081758

PATIENT
  Age: 63 Year
  Sex: Male

DRUGS (3)
  1. HEPSERA [Suspect]
     Indication: CHRONIC HEPATITIS B
     Dosage: 10 MG, UNK
     Dates: start: 20130720
  2. HEPSERA [Suspect]
     Dosage: 10 MG, QD
     Route: 048
     Dates: start: 20050204, end: 20130719
  3. ZEFFIX [Concomitant]
     Indication: CHRONIC HEPATITIS B
     Dosage: 100MG PER DAY
     Route: 048
     Dates: start: 20030606

REACTIONS (10)
  - Hyperchloraemia [Unknown]
  - Blood alkaline phosphatase increased [Unknown]
  - Chest pain [Not Recovered/Not Resolved]
  - Back pain [Not Recovered/Not Resolved]
  - Fanconi syndrome acquired [Not Recovered/Not Resolved]
  - Renal tubular acidosis [Unknown]
  - Hypophosphataemia [Recovering/Resolving]
  - Osteomalacia [Unknown]
  - Bone metabolism disorder [Unknown]
  - Bone pain [Not Recovered/Not Resolved]
